FAERS Safety Report 4399992-9 (Version None)
Quarter: 2004Q3

REPORT INFORMATION
  Report Type: 
  Country: None (occurrence: None)
  Receive Date: 20040714
  Receipt Date: 20040706
  Transmission Date: 20050211
  Serious: Yes (Hospitalization, Disabling, Other)
  Sender: FDA-Public Use
  Company Number: 2003-06-1912

PATIENT
  Age: 51 Year
  Sex: Male

DRUGS (4)
  1. INTRON A [Suspect]
     Indication: HEPATITIS C
     Dosage: 6 MU 6X/WK INTRAMUSCULAR
     Route: 030
     Dates: start: 20030605, end: 20030610
  2. REBETOL [Suspect]
     Indication: HEPATITIS C
     Dosage: 800 MG QD ORAL
     Route: 048
     Dates: start: 20030605, end: 20030610
  3. URSO [Concomitant]
  4. VOLTAREN [Concomitant]

REACTIONS (1)
  - DRUG ERUPTION [None]
